FAERS Safety Report 24374983 (Version 4)
Quarter: 2025Q3

REPORT INFORMATION
  Report Type: Report from Study
  Country: EU (occurrence: EU)
  Receive Date: 20240927
  Receipt Date: 20250921
  Transmission Date: 20251021
  Serious: Yes (Death, Hospitalization, Other)
  Sender: ABBVIE
  Company Number: EU-ABBVIE-5941403

PATIENT
  Age: 55 Year
  Sex: Female

DRUGS (2)
  1. CARBIDOPA\LEVODOPA [Suspect]
     Active Substance: CARBIDOPA\LEVODOPA
     Indication: Parkinson^s disease
     Route: 050
  2. CARBIDOPA\LEVODOPA [Suspect]
     Active Substance: CARBIDOPA\LEVODOPA

REACTIONS (5)
  - Myocardial infarction [Fatal]
  - Hallucination [Not Recovered/Not Resolved]
  - Cerebrovascular accident [Unknown]
  - Organ failure [Fatal]
  - Intentional medical device removal by patient [Unknown]

NARRATIVE: CASE EVENT DATE: 20170101
